FAERS Safety Report 8386157-9 (Version None)
Quarter: 2012Q2

REPORT INFORMATION
  Report Type: 
  Country: None (occurrence: None)
  Receive Date: 20120525
  Receipt Date: 20120517
  Transmission Date: 20120825
  Serious: Yes (Other)
  Sender: FDA-Public Use
  Company Number: US-JNJFOC-20120204553

PATIENT
  Sex: Female
  Weight: 96 kg

DRUGS (11)
  1. TYLENOL [Suspect]
     Route: 065
  2. TYLENOL [Suspect]
     Indication: FIBROMYALGIA
     Route: 065
  3. LYRICA [Suspect]
     Indication: FIBROMYALGIA
     Dosage: STARTED 3-4 YEARS AGO
     Route: 065
  4. CYMBALTA [Concomitant]
     Indication: MYALGIA
  5. IBUPROFEN [Suspect]
     Route: 048
  6. IBUPROFEN [Suspect]
     Indication: FIBROMYALGIA
     Route: 048
  7. CYMBALTA [Concomitant]
     Indication: DEPRESSION
  8. ALL OTHER THERAPEUTIC DRUG [Suspect]
     Indication: SLEEP DISORDER
     Route: 065
  9. NAPROXEN (ALEVE) [Suspect]
     Indication: FIBROMYALGIA
     Route: 065
  10. LYRICA [Suspect]
     Route: 065
     Dates: end: 20111201
  11. DIVALPROEX SODIUM [Concomitant]
     Indication: BIPOLAR DISORDER

REACTIONS (7)
  - FIBROMYALGIA [None]
  - DRUG INEFFECTIVE [None]
  - INCREASED APPETITE [None]
  - SUICIDE ATTEMPT [None]
  - DISABILITY [None]
  - WEIGHT INCREASED [None]
  - INSOMNIA [None]
